FAERS Safety Report 5355531-7 (Version None)
Quarter: 2007Q2

REPORT INFORMATION
  Report Type: 
  Country: None (occurrence: None)
  Receive Date: 20070613
  Receipt Date: 20070601
  Transmission Date: 20071010
  Serious: Yes (Other)
  Sender: FDA-Public Use
  Company Number: JP-BAYER-200710328BYL

PATIENT
  Age: 73 Year
  Sex: Male
  Weight: 72 kg

DRUGS (7)
  1. BAY43-9006 [Suspect]
     Indication: METASTATIC RENAL CELL CARCINOMA
     Dosage: TOTAL DAILY DOSE: 800 MG  UNIT DOSE: 400 MG
     Route: 048
     Dates: start: 20070418, end: 20070428
  2. BAY43-9006 [Suspect]
     Dosage: TOTAL DAILY DOSE: 400 MG  UNIT DOSE: 400 MG
     Route: 048
     Dates: start: 20070521
  3. INTRON A [Suspect]
     Indication: METASTATIC RENAL CELL CARCINOMA
     Dosage: AS USED: 60000 KIU
     Route: 030
     Dates: start: 20070521
  4. INTRON A [Suspect]
     Dosage: AS USED: 90000 KIU
     Route: 030
     Dates: start: 20070404, end: 20070427
  5. URINORM [Concomitant]
     Indication: GOUT
     Dosage: TOTAL DAILY DOSE: 50 MG
     Route: 048
     Dates: start: 19970101
  6. RENIVACE [Concomitant]
     Indication: HYPERTENSION
     Dosage: TOTAL DAILY DOSE: 5 MG
     Route: 048
     Dates: start: 20070416
  7. MAGNESIUM OXIDE [Concomitant]
     Indication: CONSTIPATION
     Dosage: TOTAL DAILY DOSE: 1.34 G
     Route: 048
     Dates: start: 20061106

REACTIONS (4)
  - ANOREXIA [None]
  - LOSS OF CONSCIOUSNESS [None]
  - MALAISE [None]
  - PYREXIA [None]
